FAERS Safety Report 9182274 (Version 1)
Quarter: 2013Q1

REPORT INFORMATION
  Report Type: Spontaneous
  Country: US (occurrence: None)
  Receive Date: 20130321
  Receipt Date: 20130321
  Transmission Date: 20140127
  Serious: Yes (Other)
  Sender: FDA-Public Use
  Company Number: None

PATIENT
  Age: 7 Year
  Sex: Male
  Weight: 31.75 kg

DRUGS (1)
  1. DIVALPROEX [Suspect]
     Indication: BIPOLAR DISORDER
     Dates: start: 20130214

REACTIONS (3)
  - Homicidal ideation [None]
  - Aggression [None]
  - Anger [None]
